FAERS Safety Report 4318805-4 (Version None)
Quarter: 2004Q1

REPORT INFORMATION
  Report Type: 
  Country: None (occurrence: None)
  Receive Date: 20040318
  Receipt Date: 20040305
  Transmission Date: 20041129
  Serious: Yes (Other)
  Sender: FDA-Public Use
  Company Number: JP-GLAXOSMITHKLINE-B0326261A

PATIENT
  Age: 79 Year
  Sex: Female

DRUGS (11)
  1. RELENZA [Suspect]
     Indication: INFLUENZA
     Dosage: 10MG TWICE PER DAY
     Route: 055
     Dates: start: 20040214, end: 20040216
  2. LUVOX [Suspect]
     Dosage: 25MG TWICE PER DAY
     Route: 048
  3. ZYLORIC [Suspect]
     Dosage: 100MG TWICE PER DAY
     Route: 048
  4. SIMVASTATIN [Concomitant]
     Dosage: 5MG PER DAY
     Route: 048
  5. BEHYD [Concomitant]
     Route: 048
  6. GASTER [Concomitant]
     Dosage: 20MG PER DAY
     Route: 048
  7. GAISAL [Concomitant]
     Dosage: 1G TWICE PER DAY
     Route: 048
  8. MAGNESIUM OXIDE [Concomitant]
     Dosage: 1G TWICE PER DAY
     Route: 048
  9. SILECE [Concomitant]
     Dosage: 2MG PER DAY
     Route: 048
  10. JUVELA NICOTINATE [Concomitant]
     Dosage: 4 PER DAY
     Route: 048
  11. RELIFEN [Concomitant]
     Route: 048

REACTIONS (2)
  - DELIRIUM [None]
  - HALLUCINATION [None]
